FAERS Safety Report 23853432 (Version 3)
Quarter: 2025Q1

REPORT INFORMATION
  Report Type: Spontaneous
  Country: US (occurrence: US)
  Receive Date: 20240514
  Receipt Date: 20250210
  Transmission Date: 20250409
  Serious: No
  Sender: PFIZER
  Company Number: US-PFIZER INC-202400106762

PATIENT
  Age: 66 Year
  Sex: Female

DRUGS (3)
  1. XELJANZ XR [Suspect]
     Active Substance: TOFACITINIB CITRATE
     Indication: Rheumatoid arthritis
     Dosage: 11 MG, 1X/DAY (IN THE MORNING DO NOT CRUSH, CHEW OR SPLIT, SWALLOW WHOLE)
     Route: 048
     Dates: start: 20240411
  2. XELJANZ XR [Suspect]
     Active Substance: TOFACITINIB CITRATE
     Dosage: 11 MG, (TAKE 1 TAB (11MG) BY MOUTH ONCE DAILY IN MORNING DO NOT CRUSH, CHEW OR SPLIT, SWALLOW WHOLE)
     Route: 048
  3. METHOTREXATE SODIUM [Concomitant]
     Active Substance: METHOTREXATE SODIUM

REACTIONS (7)
  - Therapeutic product effect incomplete [Unknown]
  - Night sweats [Unknown]
  - Nasopharyngitis [Unknown]
  - Headache [Unknown]
  - COVID-19 [Unknown]
  - Product dose omission in error [Unknown]
  - Product dose omission issue [Unknown]
